FAERS Safety Report 19403747 (Version 1)
Quarter: 2021Q2

REPORT INFORMATION
  Report Type: Spontaneous
  Country: CN (occurrence: CN)
  Receive Date: 20210610
  Receipt Date: 20210610
  Transmission Date: 20210717
  Serious: Yes (Hospitalization, Other)
  Sender: FDA-Public Use
  Company Number: CN-BAXTER-2021BAX015038

PATIENT
  Age: 71 Year
  Sex: Male
  Weight: 55 kg

DRUGS (14)
  1. ENDOXAN [Suspect]
     Active Substance: CYCLOPHOSPHAMIDE
     Dosage: CYCLOPHOSPHAMIDE 0.5 G + 0.9% SODIUM CHLORIDE 100 ML
     Route: 041
     Dates: start: 20210517, end: 20210517
  2. BORTEZOMIB. [Suspect]
     Active Substance: BORTEZOMIB
     Dosage: BORTEZOMIB 2.2 MG + 0.9% SODIUM CHLORIDE 1 ML
     Route: 058
     Dates: start: 20210517, end: 20210517
  3. BORTEZOMIB. [Suspect]
     Active Substance: BORTEZOMIB
     Indication: PLASMA CELL MYELOMA
     Dosage: PRIOR DRUG
     Route: 065
  4. BORTEZOMIB. [Suspect]
     Active Substance: BORTEZOMIB
     Dosage: BORTEZOMIB 2.2 MG + 0.9% SODIUM CHLORIDE 1 ML
     Route: 058
     Dates: start: 20210520, end: 20210520
  5. 0.9% SODIUM CHLORIDE INJECTION [Suspect]
     Active Substance: SODIUM CHLORIDE
     Dosage: 0.9% SODIUM CHLORIDE 100 ML + CYCLOPHOSPHAMIDE 0.5 G
     Route: 041
     Dates: start: 20210524, end: 20210524
  6. 0.9% SODIUM CHLORIDE INJECTION [Suspect]
     Active Substance: SODIUM CHLORIDE
     Dosage: 0.9% SODIUM CHLORIDE 1 ML + BORTEZOMIB 2.2 MG
     Route: 058
     Dates: start: 20210527, end: 20210527
  7. BORTEZOMIB. [Suspect]
     Active Substance: BORTEZOMIB
     Dosage: BORTEZOMIB 2.2 MG + 0.9% SODIUM CHLORIDE 1 ML
     Route: 058
     Dates: start: 20210524, end: 20210524
  8. 0.9% SODIUM CHLORIDE INJECTION [Suspect]
     Active Substance: SODIUM CHLORIDE
     Dosage: 0.9% SODIUM CHLORIDE 1 ML + BORTEZOMIB 2.2 MG
     Route: 058
     Dates: start: 20210520, end: 20210520
  9. ENDOXAN [Suspect]
     Active Substance: CYCLOPHOSPHAMIDE
     Indication: PLASMA CELL MYELOMA
     Dosage: PRIOR DRUG
     Route: 065
  10. ENDOXAN [Suspect]
     Active Substance: CYCLOPHOSPHAMIDE
     Dosage: CYCLOPHOSPHAMIDE 0.5 G + 0.9% SODIUM CHLORIDE 100 ML
     Route: 041
     Dates: start: 20210524, end: 20210524
  11. 0.9% SODIUM CHLORIDE INJECTION [Suspect]
     Active Substance: SODIUM CHLORIDE
     Indication: MEDICATION DILUTION
     Dosage: 0.9% SODIUM CHLORIDE 100 ML + CYCLOPHOSPHAMIDE 0.5 G
     Route: 041
     Dates: start: 20210517, end: 20210517
  12. BORTEZOMIB. [Suspect]
     Active Substance: BORTEZOMIB
     Dosage: BORTEZOMIB 2.2 MG + 0.9% SODIUM CHLORIDE 1 ML
     Route: 058
     Dates: start: 20210527, end: 20210527
  13. 0.9% SODIUM CHLORIDE INJECTION [Suspect]
     Active Substance: SODIUM CHLORIDE
     Dosage: 0.9% SODIUM CHLORIDE 1 ML + BORTEZOMIB 2.2 MG
     Route: 058
     Dates: start: 20210517, end: 20210517
  14. 0.9% SODIUM CHLORIDE INJECTION [Suspect]
     Active Substance: SODIUM CHLORIDE
     Dosage: 0.9% SODIUM CHLORIDE 1 ML + BORTEZOMIB 2.2 MG
     Route: 058
     Dates: start: 20210524, end: 20210524

REACTIONS (4)
  - White blood cell count decreased [Recovering/Resolving]
  - Myelosuppression [Recovered/Resolved]
  - Myelosuppression [Unknown]
  - Platelet count decreased [Recovering/Resolving]

NARRATIVE: CASE EVENT DATE: 20210527
